FAERS Safety Report 12600612 (Version 1)
Quarter: 2016Q3

REPORT INFORMATION
  Report Type: Spontaneous
  Country: FR (occurrence: FR)
  Receive Date: 20160727
  Receipt Date: 20160727
  Transmission Date: 20161109
  Serious: Yes (Hospitalization)
  Sender: FDA-Public Use
  Company Number: FR-FRESENIUS KABI-FK201604764

PATIENT
  Age: 54 Year
  Sex: Male

DRUGS (16)
  1. ASPEGIC [Concomitant]
     Active Substance: ASPIRIN DL-LYSINE
  2. ARIXTRA [Suspect]
     Active Substance: FONDAPARINUX SODIUM
     Indication: PRODUCT USED FOR UNKNOWN INDICATION
     Route: 042
     Dates: start: 20160126
  3. BISOPROLOL [Concomitant]
     Active Substance: BISOPROLOL
  4. NATISPRAY [Concomitant]
     Active Substance: NITROGLYCERIN
  5. ATROPINE. [Concomitant]
     Active Substance: ATROPINE
  6. VISIPAQUE [Suspect]
     Active Substance: IODIXANOL
     Indication: PRODUCT USED FOR UNKNOWN INDICATION
     Route: 065
     Dates: start: 20160126
  7. METFORMINE [Concomitant]
     Active Substance: METFORMIN HYDROCHLORIDE
  8. ATORVASTATINE [Concomitant]
     Active Substance: ATORVASTATIN
  9. TILDIEM [Concomitant]
     Active Substance: DILTIAZEM HYDROCHLORIDE
  10. RAMIPRIL. [Concomitant]
     Active Substance: RAMIPRIL
  11. NICOPASS [Concomitant]
     Active Substance: NICOTINE
  12. VOLUVEN [Suspect]
     Active Substance: HYDROXYETHYL STARCH 130/0.4
     Indication: PRODUCT USED FOR UNKNOWN INDICATION
     Route: 041
     Dates: start: 20160126
  13. BRILIQUE [Concomitant]
     Active Substance: TICAGRELOR
  14. RISORDAN [Concomitant]
     Active Substance: ISOSORBIDE DINITRATE
  15. AGRASTA [Concomitant]
  16. KARDEGIC [Concomitant]
     Active Substance: ASPIRIN LYSINE

REACTIONS (3)
  - Toxic skin eruption [Recovered/Resolved]
  - Erythema [Recovered/Resolved]
  - Pruritus [Recovered/Resolved]

NARRATIVE: CASE EVENT DATE: 20160131
